FAERS Safety Report 16100835 (Version 2)
Quarter: 2019Q1

REPORT INFORMATION
  Report Type: Report from Study
  Country: BR (occurrence: BR)
  Receive Date: 20190321
  Receipt Date: 20190325
  Transmission Date: 20190418
  Serious: Yes (Other)
  Sender: FDA-Public Use
  Company Number: BR-BAYER-2018-008891

PATIENT
  Age: 85 Year
  Sex: Female

DRUGS (6)
  1. NEXAVAR [Suspect]
     Active Substance: SORAFENIB
     Indication: THYROID CANCER STAGE IV
     Dosage: 400 MG, BID
     Route: 048
     Dates: start: 201710
  2. NEXAVAR [Suspect]
     Active Substance: SORAFENIB
     Indication: METASTASES TO LUNG
     Dosage: 200 MG, BID (1 TABLET IN THE MORNING, 1 TABLET AT NIGHT)
  3. PURAN [Concomitant]
     Active Substance: LEVOTHYROXINE SODIUM
     Indication: THYROID HORMONE REPLACEMENT THERAPY
     Dosage: 75 MG, QD
     Route: 048
     Dates: start: 201807
  4. NEXAVAR [Suspect]
     Active Substance: SORAFENIB
     Indication: THYROID CANCER STAGE IV
     Dosage: 200 MG, TID
     Route: 048
  5. PURAN [Concomitant]
     Active Substance: LEVOTHYROXINE SODIUM
     Indication: THYROID HORMONE REPLACEMENT THERAPY
     Dosage: 50 ?G, QD
     Route: 048
  6. NEXAVAR [Suspect]
     Active Substance: SORAFENIB
     Indication: THYROID CANCER STAGE IV
     Dosage: 400 MG, BID (2 TABLETS DURING THE MORNING AND 2 TABLETS DURING THE NIGHT)
     Route: 048

REACTIONS (15)
  - Skin wound [Not Recovered/Not Resolved]
  - Diarrhoea [Recovering/Resolving]
  - Injury [Not Recovered/Not Resolved]
  - Hyperkeratosis [Not Recovered/Not Resolved]
  - Intentional product misuse [None]
  - Pain in extremity [None]
  - Limb injury [Not Recovered/Not Resolved]
  - Pruritus [Not Recovered/Not Resolved]
  - Rash macular [Not Recovered/Not Resolved]
  - Skin lesion [Not Recovered/Not Resolved]
  - Wound complication [None]
  - Nausea [None]
  - Pain [Not Recovered/Not Resolved]
  - Vulvovaginal injury [None]
  - Wound secretion [None]

NARRATIVE: CASE EVENT DATE: 201712
